FAERS Safety Report 10445290 (Version 2)
Quarter: 2014Q3

REPORT INFORMATION
  Report Type: Spontaneous
  Country: US (occurrence: US)
  Receive Date: 20140910
  Receipt Date: 20140910
  Transmission Date: 20150326
  Serious: Yes (Hospitalization)
  Sender: FDA-Public Use
  Company Number: US-GLAXOSMITHKLINE-A0788555A

PATIENT
  Sex: Male
  Weight: 136.4 kg

DRUGS (3)
  1. VASOTEC [Concomitant]
     Active Substance: ENALAPRIL MALEATE
  2. AVANDIA [Suspect]
     Active Substance: ROSIGLITAZONE MALEATE
     Indication: DIABETES MELLITUS
     Dosage: 4MG PER DAY
     Route: 048
     Dates: start: 20060223, end: 20080421
  3. GLYNASE [Concomitant]
     Active Substance: GLYBURIDE

REACTIONS (4)
  - Myocardial infarction [Recovering/Resolving]
  - Coronary artery disease [Unknown]
  - Hypertensive emergency [Unknown]
  - Cardiac failure congestive [Unknown]
